FAERS Safety Report 12909697 (Version 2)
Quarter: 2016Q4

REPORT INFORMATION
  Report Type: Report from Study
  Country: AU (occurrence: AU)
  Receive Date: 20161104
  Receipt Date: 20161130
  Transmission Date: 20170207
  Serious: Yes (Other)
  Sender: FDA-Public Use
  Company Number: AU-SUN PHARMACEUTICAL INDUSTRIES LTD-2016RR-127016

PATIENT
  Age: 23 Year
  Sex: Female

DRUGS (1)
  1. LEVETIRACETAM. [Suspect]
     Active Substance: LEVETIRACETAM
     Indication: EPILEPSY
     Dosage: UNK
     Route: 065

REACTIONS (5)
  - Psychotic disorder [Recovered/Resolved]
  - Persecutory delusion [Recovered/Resolved]
  - Hallucination, auditory [Recovered/Resolved]
  - Aggression [Recovered/Resolved]
  - Thinking abnormal [Recovered/Resolved]
